FAERS Safety Report 4566527-7 (Version None)
Quarter: 2005Q1

REPORT INFORMATION
  Report Type: 
  Country: None (occurrence: None)
  Receive Date: 20050126
  Receipt Date: 20050126
  Transmission Date: 20050727
  Serious: Yes (Life-Threatening, Hospitalization)
  Sender: FDA-Public Use
  Company Number: None

PATIENT
  Age: 52 Year
  Sex: Female
  Weight: 76.6579 kg

DRUGS (6)
  1. CEFUROXIME [Suspect]
     Indication: BIOPSY LUNG
     Dosage: 1.5GM   ONCE   INTRAVENOU
     Route: 042
     Dates: start: 20031118, end: 20031118
  2. CEFUROXIME [Suspect]
     Indication: PREOPERATIVE CARE
     Dosage: 1.5GM   ONCE   INTRAVENOU
     Route: 042
     Dates: start: 20031118, end: 20031118
  3. PAROXETINE HCL [Concomitant]
  4. HYDROXYCHLOROQUINE SULFATE [Concomitant]
  5. LANSOPRAZOLE [Concomitant]
  6. ALBUTEROL/IPRATROPIUM [Concomitant]

REACTIONS (5)
  - ANAPHYLACTIC REACTION [None]
  - BLOOD PRESSURE DECREASED [None]
  - HYPOTENSION [None]
  - PULMONARY ARTERIAL PRESSURE INCREASED [None]
  - RASH [None]
